FAERS Safety Report 17875939 (Version 1)
Quarter: 2020Q2

REPORT INFORMATION
  Report Type: Spontaneous
  Country: FR (occurrence: FR)
  Receive Date: 20200609
  Receipt Date: 20200609
  Transmission Date: 20200714
  Serious: Yes (Hospitalization)
  Sender: FDA-Public Use
  Company Number: FR-TEVA-2020-FR-1246163

PATIENT
  Age: 36 Year
  Sex: Male

DRUGS (3)
  1. NAPROXENE [Suspect]
     Active Substance: NAPROXEN
     Indication: ANKYLOSING SPONDYLITIS
     Dosage: 1100 ML
     Route: 048
     Dates: end: 20200421
  2. ETANERCEPT [Suspect]
     Active Substance: ETANERCEPT
     Indication: ANKYLOSING SPONDYLITIS
     Dosage: 1 DOSAGE FORMS
     Route: 058
     Dates: end: 202004
  3. COSENTYX [Suspect]
     Active Substance: SECUKINUMAB
     Indication: ANKYLOSING SPONDYLITIS
     Dosage: 150 MG
     Route: 058
     Dates: end: 202004

REACTIONS (1)
  - Coronavirus infection [Recovered/Resolved]

NARRATIVE: CASE EVENT DATE: 20200414
